FAERS Safety Report 11003321 (Version 1)
Quarter: 2015Q2

REPORT INFORMATION
  Report Type: Spontaneous
  Country: US (occurrence: None)
  Receive Date: 20150402
  Receipt Date: 20150402
  Transmission Date: 20150821
  Serious: Yes (Other)
  Sender: FDA-Public Use
  Company Number: US-2014-11502

PATIENT
  Age: 3 Year
  Sex: Male

DRUGS (4)
  1. MELPHALAN (MELPHALAN) [Suspect]
     Active Substance: MELPHALAN
     Indication: STEM CELL TRANSPLANT
     Route: 042
  2. LEVETIRACETAM. [Concomitant]
     Active Substance: LEVETIRACETAM
  3. FILGRASTIM [Concomitant]
     Active Substance: FILGRASTIM
  4. BUSULFEX [Suspect]
     Active Substance: BUSULFAN
     Indication: STEM CELL TRANSPLANT
     Route: 042

REACTIONS (4)
  - Neutropenia [None]
  - Mucosal inflammation [None]
  - Drug administration error [None]
  - Off label use [None]
